FAERS Safety Report 9241166 (Version 1)
Quarter: 2013Q2

REPORT INFORMATION
  Report Type: Other
  Country: JP (occurrence: JP)
  Receive Date: 20130419
  Receipt Date: 20130419
  Transmission Date: 20140414
  Serious: Yes (Other)
  Sender: FDA-Public Use
  Company Number: JP-BRISTOL-MYERS SQUIBB COMPANY-18792713

PATIENT
  Age: 52 Year
  Sex: Male

DRUGS (1)
  1. KENACORT INJ 10 MG/ML [Suspect]

REACTIONS (1)
  - Tenosynovitis [Unknown]
